FAERS Safety Report 5997366-8 (Version None)
Quarter: 2008Q4

REPORT INFORMATION
  Report Type: 
  Country: None (occurrence: None)
  Receive Date: 20081212
  Receipt Date: 20081203
  Transmission Date: 20090506
  Serious: Yes (Hospitalization, Other)
  Sender: FDA-Public Use
  Company Number: US-PFIZER INC-2005056879

PATIENT
  Sex: Female
  Weight: 66.68 kg

DRUGS (4)
  1. LIPITOR [Suspect]
     Indication: BLOOD CHOLESTEROL INCREASED
     Route: 048
     Dates: start: 19980801
  2. PROCRIT [Suspect]
     Indication: ANAEMIA
     Route: 065
  3. PLAVIX [Suspect]
     Indication: TRANSIENT ISCHAEMIC ATTACK
     Route: 048
     Dates: start: 20040101
  4. HUMULIN 70/30 [Concomitant]
     Route: 065

REACTIONS (10)
  - ADRENAL DISORDER [None]
  - ANAEMIA [None]
  - CAROTID ARTERY OCCLUSION [None]
  - CHOLECYSTECTOMY [None]
  - CONSTIPATION [None]
  - CORONARY ARTERY BYPASS [None]
  - DEAFNESS [None]
  - RETINAL HAEMORRHAGE [None]
  - RETINOPATHY [None]
  - TRANSIENT ISCHAEMIC ATTACK [None]
